FAERS Safety Report 4662847-6 (Version None)
Quarter: 2005Q2

REPORT INFORMATION
  Report Type: 
  Country: None (occurrence: None)
  Receive Date: 20050511
  Receipt Date: 20050209
  Transmission Date: 20051028
  Serious: Yes (Other)
  Sender: FDA-Public Use
  Company Number: 392591

PATIENT
  Age: 52 Year
  Sex: Female

DRUGS (2)
  1. PEGASYS [Suspect]
     Dosage: OTHER
     Route: 050
     Dates: start: 20040313, end: 20050205
  2. COPEGUS [Suspect]
     Dosage: ORAL
     Route: 048
     Dates: start: 20040313, end: 20050205

REACTIONS (17)
  - ABDOMINAL PAIN [None]
  - ABDOMINAL TENDERNESS [None]
  - ANAEMIA [None]
  - ASTHENIA [None]
  - DRY EYE [None]
  - EPISTAXIS [None]
  - ERYTHEMA [None]
  - FATIGUE [None]
  - INCREASED APPETITE [None]
  - NAUSEA [None]
  - OCULAR HYPERAEMIA [None]
  - OEDEMA PERIPHERAL [None]
  - PAIN IN EXTREMITY [None]
  - PYREXIA [None]
  - RASH [None]
  - SKIN DISORDER [None]
  - VISION BLURRED [None]
